FAERS Safety Report 5738866-5 (Version None)
Quarter: 2008Q2

REPORT INFORMATION
  Report Type: 
  Country: None (occurrence: None)
  Receive Date: 20080515
  Receipt Date: 20080425
  Transmission Date: 20081010
  Serious: No
  Sender: FDA-Public Use
  Company Number: A0724837A

PATIENT
  Age: 46 Year
  Sex: Female

DRUGS (2)
  1. VERAMYST [Suspect]
     Dosage: 27.5MCG PER DAY
     Route: 045
     Dates: start: 20080421, end: 20080424
  2. METRONIDAZOLE HCL [Concomitant]

REACTIONS (3)
  - DRUG INEFFECTIVE [None]
  - NASAL CONGESTION [None]
  - NASAL DRYNESS [None]
